FAERS Safety Report 16698089 (Version 1)
Quarter: 2019Q3

REPORT INFORMATION
  Report Type: Spontaneous
  Country: JP (occurrence: JP)
  Receive Date: 20190813
  Receipt Date: 20190813
  Transmission Date: 20191004
  Serious: Yes (Other)
  Sender: FDA-Public Use
  Company Number: JP-PFIZER INC-2019337570

PATIENT
  Age: 68 Year
  Sex: Male
  Weight: 80.1 kg

DRUGS (8)
  1. CARBOCISTEINE [Concomitant]
     Active Substance: CARBOCYSTEINE
     Dosage: UNK
  2. RIVOTRIL [Concomitant]
     Active Substance: CLONAZEPAM
     Dosage: UNK
  3. DAI-KENCHU-TO [Concomitant]
     Active Substance: MALTOSE
     Dosage: UNK
  4. TIAPRIDE [Concomitant]
     Active Substance: TIAPRIDE
     Dosage: UNK
  5. SODIUM CHLORIDE. [Concomitant]
     Active Substance: SODIUM CHLORIDE
     Dosage: UNK
  6. ZYVOX [Suspect]
     Active Substance: LINEZOLID
     Indication: STAPHYLOCOCCAL INFECTION
     Dosage: 600 MG, 2X/DAY
     Route: 048
     Dates: start: 20190720, end: 20190720
  7. LANSOPRAZOLE. [Concomitant]
     Active Substance: LANSOPRAZOLE
     Dosage: UNK
  8. AMOBAN [Concomitant]
     Active Substance: ZOPICLONE
     Dosage: UNK

REACTIONS (10)
  - Serotonin syndrome [Recovered/Resolved]
  - Condition aggravated [Recovered/Resolved]
  - Myoclonus [Recovered/Resolved]
  - Hyperhidrosis [Recovered/Resolved]
  - Affect lability [Recovered/Resolved]
  - Eye movement disorder [Recovered/Resolved]
  - Confusional state [Recovered/Resolved]
  - Flushing [Recovered/Resolved]
  - Heart rate increased [Recovered/Resolved]
  - Oxygen saturation decreased [Recovered/Resolved]

NARRATIVE: CASE EVENT DATE: 20190720
